FAERS Safety Report 9379818 (Version 1)
Quarter: 2013Q3

REPORT INFORMATION
  Report Type: Spontaneous
  Country: US (occurrence: None)
  Receive Date: 20130701
  Receipt Date: 20130701
  Transmission Date: 20140515
  Serious: No
  Sender: FDA-Public Use
  Company Number: None

PATIENT
  Age: 25 Year
  Sex: Male
  Weight: 61 kg

DRUGS (1)
  1. MINOCYCLINE [Suspect]
     Indication: ACNE
     Route: 048
     Dates: start: 20120531, end: 20121231

REACTIONS (12)
  - Arthritis [None]
  - Lupus-like syndrome [None]
  - Myalgia [None]
  - Pain in extremity [None]
  - Arthralgia [None]
  - Arthralgia [None]
  - Arthralgia [None]
  - Pain in extremity [None]
  - Musculoskeletal pain [None]
  - Musculoskeletal stiffness [None]
  - Antinuclear antibody positive [None]
  - Tenderness [None]
